FAERS Safety Report 16134285 (Version 1)
Quarter: 2019Q1

REPORT INFORMATION
  Report Type: Spontaneous
  Country: US (occurrence: US)
  Receive Date: 20190329
  Receipt Date: 20190329
  Transmission Date: 20190418
  Serious: Yes (Other)
  Sender: FDA-Public Use
  Company Number: US-PFIZER INC-2019133484

PATIENT
  Age: 35 Year
  Sex: Female
  Weight: 80.74 kg

DRUGS (2)
  1. CORTEF [Suspect]
     Active Substance: HYDROCORTISONE
     Indication: ADRENAL INSUFFICIENCY
     Dosage: 60 MG, 1X/DAY
     Route: 048
  2. CORTEF [Suspect]
     Active Substance: HYDROCORTISONE
     Dosage: 60 MG, DAILY (3 TABLETS BY MOUTH IN THE MORNING AND THREE TABLETS BY MOUTH IN THE AFTERNOON)
     Route: 048

REACTIONS (13)
  - Dental caries [Not Recovered/Not Resolved]
  - Hypersomnia [Unknown]
  - Weight fluctuation [Unknown]
  - Fatigue [Unknown]
  - Hip fracture [Recovered/Resolved with Sequelae]
  - Increased appetite [Unknown]
  - Skin burning sensation [Not Recovered/Not Resolved]
  - Gait inability [Unknown]
  - Multiple sclerosis [Not Recovered/Not Resolved]
  - Bursitis [Recovered/Resolved with Sequelae]
  - Tooth infection [Unknown]
  - Bone disorder [Unknown]
  - Insomnia [Unknown]

NARRATIVE: CASE EVENT DATE: 2018
